FAERS Safety Report 11720975 (Version 1)
Quarter: 2015Q4

REPORT INFORMATION
  Report Type: Spontaneous
  Country: US (occurrence: US)
  Receive Date: 20151110
  Receipt Date: 20151110
  Transmission Date: 20160304
  Serious: No
  Sender: FDA-Public Use
  Company Number: US-SA-2015SA157896

PATIENT
  Age: 64 Year
  Sex: Female

DRUGS (3)
  1. ALIROCUMAB PREFILLED PEN [Concomitant]
     Indication: BLOOD CHOLESTEROL INCREASED
     Dates: start: 20150916
  2. PRALUENT [Suspect]
     Active Substance: ALIROCUMAB
     Indication: BLOOD CHOLESTEROL INCREASED
     Dosage: FREQUENCY-EVERY 2 WEEKS
     Route: 065
     Dates: start: 20150916
  3. PLAVIX [Suspect]
     Active Substance: CLOPIDOGREL BISULFATE
     Route: 065

REACTIONS (1)
  - Dysgeusia [Not Recovered/Not Resolved]

NARRATIVE: CASE EVENT DATE: 20150921
